FAERS Safety Report 12488770 (Version 1)
Quarter: 2016Q2

REPORT INFORMATION
  Report Type: Spontaneous
  Country: JP (occurrence: JP)
  Receive Date: 20160622
  Receipt Date: 20160622
  Transmission Date: 20160815
  Serious: Yes (Other)
  Sender: FDA-Public Use
  Company Number: JP-PFIZER INC-2016227040

PATIENT
  Age: 78 Year
  Sex: Female
  Weight: 55 kg

DRUGS (8)
  1. CELECOX [Suspect]
     Active Substance: CELECOXIB
     Indication: TENOSYNOVITIS
  2. LOXOPROFEN NA [Concomitant]
     Active Substance: LOXOPROFEN SODIUM
     Indication: OSTEOARTHRITIS
     Dosage: 50 MG, UNK
     Dates: start: 20160404
  3. FAMOTIDINE. [Concomitant]
     Active Substance: FAMOTIDINE
     Indication: TENOSYNOVITIS
     Dosage: 10 MG, 2X/DAY (IN THE MORNING AND EVENING FOR 14 DAYS)
     Dates: start: 20160404, end: 20160418
  4. XYLOCAINE /00033402/ [Concomitant]
     Dosage: 1 %, UNK
     Dates: start: 20160404, end: 20160502
  5. CELECOX [Suspect]
     Active Substance: CELECOXIB
     Indication: OSTEOARTHRITIS
     Dosage: 100 MG, TWICE DAILY, IN THE MORNING AND EVENING FOR 14 DAYS
     Route: 048
     Dates: start: 20160404, end: 20160418
  6. LINOLOSAL [Concomitant]
     Dosage: 4 MG, UNK
     Dates: start: 20160404, end: 20160502
  7. FAMOTIDINE. [Concomitant]
     Active Substance: FAMOTIDINE
     Indication: OSTEOARTHRITIS
  8. LOXOPROFEN NA [Concomitant]
     Active Substance: LOXOPROFEN SODIUM
     Indication: TENOSYNOVITIS
     Dosage: 100 MG, UNK
     Dates: start: 20160404

REACTIONS (2)
  - Face oedema [Recovered/Resolved]
  - Toxic skin eruption [Recovered/Resolved]

NARRATIVE: CASE EVENT DATE: 20160404
